FAERS Safety Report 13463070 (Version 2)
Quarter: 2017Q4

REPORT INFORMATION
  Report Type: Spontaneous
  Country: US (occurrence: US)
  Receive Date: 20170420
  Receipt Date: 20171109
  Transmission Date: 20180320
  Serious: Yes (Other)
  Sender: FDA-Public Use
  Company Number: ALCN2017US002732

PATIENT
  Age: 69 Year
  Sex: Female
  Weight: 48.53 kg

DRUGS (11)
  1. PROLENSA [Suspect]
     Active Substance: BROMFENAC SODIUM
     Indication: POSTOPERATIVE CARE
     Dosage: UNK, QD
     Route: 047
     Dates: start: 20161114, end: 20161121
  2. CYCLOPENTOLATE. [Concomitant]
     Active Substance: CYCLOPENTOLATE
     Indication: PREOPERATIVE CARE
     Route: 065
  3. PHENYLEPHRINE [Concomitant]
     Active Substance: PHENYLEPHRINE\PHENYLEPHRINE HYDROCHLORIDE
     Indication: PREOPERATIVE CARE
     Route: 065
  4. KETOROLAC [Concomitant]
     Active Substance: KETOROLAC\KETOROLAC TROMETHAMINE
     Indication: PREOPERATIVE CARE
     Route: 065
  5. BSS [Suspect]
     Active Substance: CALCIUM CHLORIDE\MAGNESIUM CHLORIDE\POTASSIUM CHLORIDE\SODIUM ACETATE\SODIUM CHLORIDE\SODIUM CITRATE
     Indication: EYE IRRIGATION
     Route: 047
  6. BETADINE [Suspect]
     Active Substance: POVIDONE-IODINE
     Indication: PRODUCT USED FOR UNKNOWN INDICATION
     Route: 065
  7. EPINEPHRINE. [Suspect]
     Active Substance: EPINEPHRINE
     Indication: EYE IRRIGATION
     Route: 047
  8. TROPICAMIDE. [Concomitant]
     Active Substance: TROPICAMIDE
     Indication: PREOPERATIVE CARE
     Route: 065
  9. BESIVANCE [Suspect]
     Active Substance: BESIFLOXACIN
     Indication: POSTOPERATIVE CARE
     Dosage: UNK UNK, TID
     Route: 047
     Dates: start: 20161114, end: 201611
  10. LOTEMAX [Suspect]
     Active Substance: LOTEPREDNOL ETABONATE
     Indication: POSTOPERATIVE CARE
     Dosage: UNK
     Route: 047
     Dates: start: 20061114, end: 201611
  11. OFLOXACINE [Concomitant]
     Active Substance: OFLOXACIN
     Indication: PREOPERATIVE CARE
     Route: 065

REACTIONS (7)
  - Hypopyon [Recovering/Resolving]
  - Corneal oedema [Recovering/Resolving]
  - Ocular hyperaemia [Unknown]
  - Endophthalmitis [Recovering/Resolving]
  - Lacrimation increased [Unknown]
  - Visual impairment [Recovering/Resolving]
  - Vision blurred [Unknown]

NARRATIVE: CASE EVENT DATE: 20161121
